FAERS Safety Report 25937732 (Version 2)
Quarter: 2025Q4

REPORT INFORMATION
  Report Type: Spontaneous
  Country: JP (occurrence: JP)
  Receive Date: 20251018
  Receipt Date: 20251027
  Transmission Date: 20260117
  Serious: Yes (Hospitalization)
  Sender: ABBVIE
  Company Number: JP-ABBVIE-6506691

PATIENT

DRUGS (1)
  1. VYALEV [Suspect]
     Active Substance: FOSCARBIDOPA\FOSLEVODOPA
     Indication: Parkinson^s disease
     Dosage: 10 ML PER DAY
     Route: 058

REACTIONS (3)
  - Septic shock [Unknown]
  - Systemic candida [Unknown]
  - Stenosis [Unknown]

NARRATIVE: CASE EVENT DATE: 20250101
